FAERS Safety Report 4502773-6 (Version None)
Quarter: 2004Q4

REPORT INFORMATION
  Report Type: 
  Country: None (occurrence: None)
  Receive Date: 20041116
  Receipt Date: 20041028
  Transmission Date: 20050328
  Serious: Yes (Death, Hospitalization)
  Sender: FDA-Public Use
  Company Number: FR-MERCK-0411FRA00019

PATIENT
  Age: 52 Year
  Sex: Female

DRUGS (9)
  1. CANCIDAS [Suspect]
     Indication: BRONCHOPULMONARY ASPERGILLOSIS
     Route: 042
     Dates: start: 20030701, end: 20030701
  2. CANCIDAS [Suspect]
     Route: 042
     Dates: start: 20030701, end: 20030701
  3. VORICONAZOLE [Suspect]
     Indication: BRONCHOPULMONARY ASPERGILLOSIS
     Route: 042
     Dates: start: 20030501, end: 20030501
  4. VORICONAZOLE [Suspect]
     Route: 042
     Dates: start: 20030501, end: 20030701
  5. CYCLOPHOSPHAMIDE [Concomitant]
     Indication: LYMPHOPROLIFERATIVE DISORDER
     Route: 042
     Dates: start: 20030701
  6. DOXORUBICIN [Concomitant]
     Indication: LYMPHOPROLIFERATIVE DISORDER
     Route: 042
     Dates: start: 20030701
  7. VINCRISTINE SULFATE [Concomitant]
     Indication: LYMPHOPROLIFERATIVE DISORDER
     Route: 042
     Dates: start: 20030701
  8. PREDNISONE [Concomitant]
     Indication: LYMPHOPROLIFERATIVE DISORDER
     Route: 065
     Dates: start: 20030701
  9. RITUXIMAB [Concomitant]
     Indication: LYMPHOPROLIFERATIVE DISORDER
     Route: 042
     Dates: start: 20030701

REACTIONS (1)
  - MUCORMYCOSIS [None]
